FAERS Safety Report 7833348-9 (Version None)
Quarter: 2011Q4

REPORT INFORMATION
  Report Type: 
  Country: None (occurrence: None)
  Receive Date: 20111024
  Receipt Date: 20111018
  Transmission Date: 20120403
  Serious: No
  Sender: FDA-Public Use
  Company Number: US-PFIZER INC-2011203306

PATIENT
  Sex: Female

DRUGS (1)
  1. DEPO-PROVERA [Suspect]
     Dosage: UNK

REACTIONS (5)
  - MENORRHAGIA [None]
  - EMOTIONAL DISORDER [None]
  - BLOOD IRON DECREASED [None]
  - AMENORRHOEA [None]
  - MUSCLE SPASMS [None]
